FAERS Safety Report 17509854 (Version 1)
Quarter: 2020Q1

REPORT INFORMATION
  Report Type: Report from Study
  Country: None (occurrence: US)
  Receive Date: 20200306
  Receipt Date: 20200306
  Transmission Date: 20200409
  Serious: Yes (Hospitalization)
  Sender: FDA-Public Use
  Company Number: US-ABBVIE-19P-163-2911916-00

PATIENT
  Age: 54 Year
  Sex: Male
  Weight: 90.6 kg

DRUGS (23)
  1. VENETOCLAX. [Suspect]
     Active Substance: VENETOCLAX
     Route: 048
     Dates: start: 20190824, end: 20191001
  2. DINACICLIB [Suspect]
     Active Substance: DINACICLIB
     Dosage: DAYS 1, 4, AND 8 FOR CYCLE 1 AND ON DAYS 1 AND 8 FOR SUBSEQUENT CYCLES
     Route: 042
     Dates: start: 20190828, end: 20190918
  3. NORMAL SALINE SOLUTION (0.9% SODIUM CHLORIDE) [Concomitant]
     Dosage: DOSE: 100 ML/HR
     Route: 042
     Dates: start: 20190821, end: 20190823
  4. NORMAL SALINE SOLUTION (0.9% SODIUM CHLORIDE) [Concomitant]
     Dosage: DOSE: 200 ML/HR
     Route: 042
     Dates: start: 20190823, end: 20190826
  5. MIRALAX [Concomitant]
     Active Substance: POLYETHYLENE GLYCOL 3350
     Indication: CONSTIPATION
     Route: 048
     Dates: start: 2016
  6. LIDODERM [Concomitant]
     Active Substance: LIDOCAINE
     Indication: BACK PAIN
     Dosage: 1 PATCH
     Dates: start: 20190821
  7. VENETOCLAX. [Suspect]
     Active Substance: VENETOCLAX
     Route: 048
     Dates: start: 20190822, end: 20190822
  8. VENETOCLAX. [Suspect]
     Active Substance: VENETOCLAX
     Route: 048
     Dates: start: 20190823, end: 20190823
  9. OXYCODONE [Concomitant]
     Active Substance: OXYCODONE
     Indication: BACK PAIN
     Route: 048
     Dates: start: 20190821
  10. DINACICLIB [Suspect]
     Active Substance: DINACICLIB
     Dosage: DAYS 1, 4, AND 8 FOR CYCLE 1 AND ON DAYS 1 AND 8 FOR SUBSEQUENT CYCLES
     Route: 042
     Dates: start: 20190824, end: 20190824
  11. NORMAL SALINE SOLUTION (0.9% SODIUM CHLORIDE) [Concomitant]
     Dosage: DOSE: 100 ML/HR
     Route: 042
     Dates: start: 20190826, end: 20190902
  12. ACYCLOVIR. [Concomitant]
     Active Substance: ACYCLOVIR
     Indication: ANTIVIRAL PROPHYLAXIS
     Route: 048
     Dates: start: 2019
  13. PROCHLOPERAZINE EDISYLATE [Concomitant]
     Indication: NAUSEA
     Route: 042
     Dates: start: 20190824
  14. NORMAL SALINE SOLUTION (0.9% SODIUM CHLORIDE) [Concomitant]
     Indication: PROPHYLAXIS
     Dosage: DOSE: 200 ML/HR
     Route: 042
     Dates: start: 20190820, end: 20190821
  15. DEXAMETHASONE. [Concomitant]
     Active Substance: DEXAMETHASONE
     Indication: PREMEDICATION
  16. VENETOCLAX. [Suspect]
     Active Substance: VENETOCLAX
     Indication: ACUTE MYELOID LEUKAEMIA
     Route: 048
     Dates: start: 20190821, end: 20190821
  17. INSULIN ASPART [Concomitant]
     Active Substance: INSULIN ASPART
     Indication: DIABETES MELLITUS
     Dosage: 0-8 UNITS
     Route: 058
     Dates: start: 2017
  18. ALLOPURINOL. [Concomitant]
     Active Substance: ALLOPURINOL
     Indication: PROPHYLAXIS
     Route: 048
     Dates: start: 20190820, end: 20190904
  19. LEVOFLOXACIN. [Concomitant]
     Active Substance: LEVOFLOXACIN
     Indication: ANTIBIOTIC PROPHYLAXIS
     Route: 048
     Dates: start: 2019
  20. ACETAMINOPHEN. [Concomitant]
     Active Substance: ACETAMINOPHEN
     Indication: BACK PAIN
     Route: 048
     Dates: start: 20190821
  21. DINACICLIB [Suspect]
     Active Substance: DINACICLIB
     Indication: ACUTE MYELOID LEUKAEMIA
     Dosage: DAYS 1, 4, AND 8 FOR CYCLE 1 AND ON DAYS 1 AND 8 FOR SUBSEQUENT CYCLES
     Route: 042
     Dates: start: 20190821, end: 20190821
  22. INSULIN GLARGINE [Concomitant]
     Active Substance: INSULIN GLARGINE
     Indication: DIABETES MELLITUS
     Dosage: 3-6 UNITS
     Route: 058
     Dates: start: 2017
  23. DEXAMETHASONE. [Concomitant]
     Active Substance: DEXAMETHASONE
     Indication: CHEMOTHERAPY
     Route: 042
     Dates: start: 20190821

REACTIONS (1)
  - Thrombocytopenia [Not Recovered/Not Resolved]

NARRATIVE: CASE EVENT DATE: 20190825
